FAERS Safety Report 6144214-1 (Version None)
Quarter: 2009Q2

REPORT INFORMATION
  Report Type: 
  Country: None (occurrence: None)
  Receive Date: 20090406
  Receipt Date: 20090326
  Transmission Date: 20091009
  Serious: Yes (Hospitalization)
  Sender: FDA-Public Use
  Company Number: PHHY2009FR12136

PATIENT

DRUGS (1)
  1. METHERGINE [Suspect]

REACTIONS (1)
  - YAWNING [None]
